FAERS Safety Report 25150189 (Version 1)
Quarter: 2025Q2

REPORT INFORMATION
  Report Type: Spontaneous
  Country: US (occurrence: US)
  Receive Date: 20250402
  Receipt Date: 20250402
  Transmission Date: 20250717
  Serious: Yes (Hospitalization)
  Sender: Y-MABS THERAPEUTICS
  Company Number: US-Y-mAbs Therapeutics-2174106

PATIENT
  Sex: Male

DRUGS (7)
  1. DANYELZA [Suspect]
     Active Substance: NAXITAMAB-GQGK
     Indication: Neuroblastoma
     Dates: start: 20240819, end: 20250110
  2. TEMODAR [Concomitant]
     Active Substance: TEMOZOLOMIDE
  3. DOPAMINE [Concomitant]
     Active Substance: DOPAMINE HYDROCHLORIDE
  4. SOLU-CORTEF [Concomitant]
     Active Substance: HYDROCORTISONE SODIUM SUCCINATE
  5. SODIUM CHLORIDE [Concomitant]
     Active Substance: SODIUM CHLORIDE
  6. ATIVAN [Concomitant]
     Active Substance: LORAZEPAM
  7. IRINOTECAN HYDROCHLORIDE [Concomitant]
     Active Substance: IRINOTECAN HYDROCHLORIDE

REACTIONS (1)
  - Hypotension [Recovered/Resolved]

NARRATIVE: CASE EVENT DATE: 20250108
